FAERS Safety Report 4485379-7 (Version None)
Quarter: 2004Q4

REPORT INFORMATION
  Report Type: 
  Country: None (occurrence: None)
  Receive Date: 20041026
  Receipt Date: 20020618
  Transmission Date: 20050328
  Serious: Yes (Hospitalization)
  Sender: FDA-Public Use
  Company Number: 200212439FR

PATIENT
  Sex: Male
  Weight: 79 kg

DRUGS (6)
  1. ARAVA [Suspect]
     Indication: RHEUMATOID ARTHRITIS
     Route: 048
     Dates: start: 20020101, end: 20020517
  2. CORTANCYL [Concomitant]
     Indication: RHEUMATOID ARTHRITIS
     Route: 048
     Dates: start: 20020525, end: 20020524
  3. LANSOPRAZOLE [Concomitant]
     Route: 048
  4. CYCLADOL [Concomitant]
     Route: 048
  5. MOPRAL [Concomitant]
     Route: 048
  6. TAHOR [Concomitant]
     Route: 048

REACTIONS (20)
  - ALANINE AMINOTRANSFERASE INCREASED [None]
  - ARTHROPATHY [None]
  - ASPARTATE AMINOTRANSFERASE INCREASED [None]
  - BALANCE DISORDER [None]
  - COMPLEMENT FACTOR C4 DECREASED [None]
  - GAMMA-GLUTAMYLTRANSFERASE INCREASED [None]
  - HEADACHE [None]
  - HEPATIC TRAUMA [None]
  - HYPERTENSION [None]
  - NECROSIS [None]
  - NERVOUS SYSTEM DISORDER [None]
  - NEUROPATHY [None]
  - PERIPHERAL MOTOR NEUROPATHY [None]
  - PERIPHERAL SENSORY NEUROPATHY [None]
  - POLYARTERITIS NODOSA [None]
  - PROTEINURIA [None]
  - PYREXIA [None]
  - SKIN DISORDER [None]
  - VIBRATION TEST ABNORMAL [None]
  - WHITE BLOOD CELL COUNT INCREASED [None]
